FAERS Safety Report 4787985-9 (Version None)
Quarter: 2005Q3

REPORT INFORMATION
  Report Type: 
  Country: None (occurrence: None)
  Receive Date: 20050914
  Receipt Date: 20050615
  Transmission Date: 20060218
  Serious: Yes (Other)
  Sender: FDA-Public Use
  Company Number: 408385

PATIENT
  Age: 58 Year
  Sex: Female
  Weight: 50.3 kg

DRUGS (6)
  1. BONIVA [Suspect]
     Dosage: ORAL
     Route: 048
     Dates: start: 20050614, end: 20050711
  2. TOPROL (METOPROLOL SUCCINATE) [Concomitant]
  3. ASPIRIN [Concomitant]
  4. FLEXERIL [Concomitant]
  5. ALLEGRA [Concomitant]
  6. FOSAMAX [Concomitant]

REACTIONS (2)
  - NAUSEA [None]
  - VOMITING [None]
